FAERS Safety Report 22912015 (Version 2)
Quarter: 2024Q1

REPORT INFORMATION
  Report Type: Spontaneous
  Country: JP (occurrence: JP)
  Receive Date: 20230906
  Receipt Date: 20240308
  Transmission Date: 20240410
  Serious: Yes (Death, Other)
  Sender: FDA-Public Use
  Company Number: JP-ELI_LILLY_AND_COMPANY-JP202308019189

PATIENT
  Age: 75 Year
  Sex: Male

DRUGS (1)
  1. RETEVMO [Suspect]
     Active Substance: SELPERCATINIB
     Indication: Non-small cell lung cancer recurrent
     Dosage: 320 MG, UNKNOWN
     Route: 048
     Dates: start: 20230809

REACTIONS (2)
  - Myocardial ischaemia [Fatal]
  - Dehydration [Unknown]

NARRATIVE: CASE EVENT DATE: 20230801
